FAERS Safety Report 12635888 (Version 1)
Quarter: 2016Q3

REPORT INFORMATION
  Report Type: Spontaneous
  Country: US (occurrence: US)
  Receive Date: 20160809
  Receipt Date: 20160809
  Transmission Date: 20161109
  Serious: No
  Sender: FDA-Public Use
  Company Number: US-PFIZER INC-2016377282

PATIENT
  Age: 5 Year
  Sex: Male

DRUGS (1)
  1. EPIPEN [Suspect]
     Active Substance: EPINEPHRINE
     Dosage: UNK, ONCE
     Dates: start: 20160801, end: 20160801

REACTIONS (2)
  - Injection site injury [Not Recovered/Not Resolved]
  - Accidental exposure to product by child [Recovered/Resolved]

NARRATIVE: CASE EVENT DATE: 20160801
